FAERS Safety Report 7497833-4 (Version None)
Quarter: 2011Q2

REPORT INFORMATION
  Report Type: 
  Country: None (occurrence: None)
  Receive Date: 20110524
  Receipt Date: 20090213
  Transmission Date: 20111010
  Serious: Yes (Other)
  Sender: FDA-Public Use
  Company Number: US-BAYER-200912887NA

PATIENT
  Age: 60 Year
  Sex: Male
  Weight: 76.327 kg

DRUGS (30)
  1. ASPIRIN [Concomitant]
     Dosage: UNK
     Dates: start: 20060101
  2. PROPOFOL [Concomitant]
     Dosage: 100/10 MG
     Route: 042
     Dates: start: 20061107, end: 20061107
  3. GENTAMYCIN SULFATE [Concomitant]
     Dosage: 80 MG, UNK
     Route: 042
  4. NORVASC [Concomitant]
     Dosage: 5 MG, QD
     Route: 048
     Dates: start: 20000101
  5. NORTRIPTYLINE HCL [Concomitant]
     Dosage: 25 MG, HS
     Route: 048
     Dates: start: 20061101
  6. FENTANYL [Concomitant]
     Dosage: 750 MG, UNK
     Route: 042
     Dates: start: 20061107, end: 20061107
  7. CALCIUM CARBONATE [Concomitant]
     Dosage: 1000 MG, UNK
     Route: 042
     Dates: start: 20061107, end: 20061107
  8. INSULIN [Concomitant]
     Dosage: 3.5 UNITS/HOUR
     Route: 042
     Dates: start: 20061107, end: 20061107
  9. AMLODIPINE [Concomitant]
  10. SIMVASTATIN [Concomitant]
  11. AMIODARONE HCL [Concomitant]
     Dosage: 300 MG, UNK
     Route: 042
  12. BENAZEPRIL HYDROCHLORIDE [Concomitant]
     Dosage: 20 MG, QD
     Route: 048
     Dates: start: 20060101
  13. VERSED [Concomitant]
     Dosage: 5 MG, UNK
     Route: 042
     Dates: start: 20061107, end: 20061107
  14. LASIX [Concomitant]
     Dosage: 80 MG, UNK
     Route: 042
     Dates: start: 20061107, end: 20061107
  15. VICODIN [Concomitant]
     Dosage: 1 TABLET AS NEEDED FOR PAIN
     Route: 048
  16. EPINEPHRINE [Concomitant]
     Dosage: 0.04 MICROGRAM/MIN
     Route: 042
     Dates: start: 20061107, end: 20061107
  17. CEFAZOLIN [Concomitant]
     Dosage: 1 G, UNK
     Route: 042
     Dates: start: 20061107, end: 20061107
  18. LASIX [Concomitant]
     Dosage: 40 MG, QD
     Route: 048
  19. LISINOPRIL [Concomitant]
  20. FUROSEMIDE [Concomitant]
     Dosage: 40 MG, QD
     Route: 048
     Dates: start: 20060101
  21. ZOCOR [Concomitant]
     Dosage: 20 MG, QD
     Route: 048
     Dates: start: 20060101
  22. ALDACTONE [Concomitant]
     Dosage: 25 MG, QD
     Route: 048
     Dates: start: 20061101
  23. METOPROLOL SUCCINATE [Concomitant]
     Dosage: 50 MG, QD
     Route: 048
     Dates: start: 20061101
  24. HEPARIN [Concomitant]
     Dosage: 2500 UNITS/ 500CC
     Route: 042
     Dates: start: 20061107, end: 20061107
  25. PROTAMINE SULFATE [Concomitant]
     Dosage: 250 MG, UNK
     Route: 042
     Dates: start: 20061107, end: 20061107
  26. TOPROL-XL [Concomitant]
  27. TRASYLOL [Suspect]
     Indication: AORTIC ANEURYSM REPAIR
     Dosage: 2 MG, Q1HR
     Route: 042
     Dates: start: 20061107, end: 20061107
  28. TRASYLOL [Suspect]
     Indication: AORTIC VALVE REPLACEMENT
  29. ACETYLSALICYLIC ACID SRT [Concomitant]
     Dosage: 81 MG, QD
     Route: 048
  30. NEO-SYNEPHRINOL [Concomitant]
     Dosage: 40 MCG
     Route: 042

REACTIONS (6)
  - RENAL FAILURE ACUTE [None]
  - INJURY [None]
  - EMOTIONAL DISTRESS [None]
  - PAIN [None]
  - RENAL FAILURE [None]
  - UNEVALUABLE EVENT [None]
